FAERS Safety Report 4654658-2 (Version None)
Quarter: 2005Q2

REPORT INFORMATION
  Report Type: 
  Country: None (occurrence: None)
  Receive Date: 20050504
  Receipt Date: 20050504
  Transmission Date: 20051028
  Serious: Yes (Hospitalization, Other)
  Sender: FDA-Public Use
  Company Number: None

PATIENT
  Age: 56 Year
  Sex: Female
  Weight: 86.1834 kg

DRUGS (2)
  1. ADRIAMYCIN PFS [Suspect]
     Indication: BREAST CANCER
     Dates: start: 20050114, end: 20050114
  2. TAXOTERE [Suspect]
     Indication: BREAST CANCER
     Dates: start: 20050211, end: 20050311

REACTIONS (2)
  - CATHETER RELATED COMPLICATION [None]
  - EXTRAVASATION [None]
